FAERS Safety Report 21231692 (Version 1)
Quarter: 2022Q3

REPORT INFORMATION
  Report Type: Spontaneous
  Country: FR (occurrence: FR)
  Receive Date: 20220819
  Receipt Date: 20220819
  Transmission Date: 20221027
  Serious: Yes (Other)
  Sender: FDA-Public Use
  Company Number: None

PATIENT
  Age: 75 Year
  Sex: Male
  Weight: 74 kg

DRUGS (13)
  1. ALFUZOSIN HYDROCHLORIDE [Suspect]
     Active Substance: ALFUZOSIN HYDROCHLORIDE
     Indication: Product used for unknown indication
     Dosage: ALFUZOSINE (CHLORHYDRATE D) ,  UNIT DOSE : 10 MG  , FREQUENCY TIME : 1 DAY
  2. ATORVASTATIN [Suspect]
     Active Substance: ATORVASTATIN
     Indication: Hypercholesterolaemia
     Dosage: UNIT DOSE : 20 MG  , FREQUENCY TIME : 1 DAY
  3. BICALUTAMIDE [Suspect]
     Active Substance: BICALUTAMIDE
     Indication: Prostate cancer
     Dosage: UNIT DOSE : 50 MG   , FREQUENCY TIME :  1 DAY ,  THERAPY  END DATE : NASK
     Dates: start: 20220428
  4. BISOPROLOL FUMARATE [Suspect]
     Active Substance: BISOPROLOL FUMARATE
     Indication: Product used for unknown indication
     Dosage: BISOPROLOL (FUMARATE ACIDE DE) , UNIT DOSE : 5 MG   , FREQUENCY TIME : 1 DAY
  5. PANTOPRAZOLE [Suspect]
     Active Substance: PANTOPRAZOLE
     Indication: Gastrooesophageal reflux disease
     Dosage: UNIT DOSE : 20 MG  , FREQUENCY TIME :   1 DAY
  6. PREGABALIN [Suspect]
     Active Substance: PREGABALIN
     Indication: Product used for unknown indication
     Dosage: UNIT DOSE : 100 MG  , FREQUENCY TIME : 1 DAY
  7. DOCETAXEL [Suspect]
     Active Substance: DOCETAXEL
     Indication: Prostate cancer
     Dosage: UNIT DOSE : 1 DF , FREQUENCY TIME :  3 WEEKS , THERAPY  END DATE : NASK
     Dates: start: 20220603
  8. NICORANDIL [Suspect]
     Active Substance: NICORANDIL
     Indication: Product used for unknown indication
     Dosage: UNIT DOSE : 20 MG  , FREQUENCY TIME : 1 DAY
  9. KARDEGIC [Suspect]
     Active Substance: ASPIRIN DL-LYSINE
     Indication: Product used for unknown indication
     Dosage: FORM STRENGTH : 75 MG, POWDER FOR ORAL SOLUTION IN SACHET-DOSE , UNIT DOSE : 1 DF , FREQUENCY TIME :
  10. ZYTIGA [Suspect]
     Active Substance: ABIRATERONE ACETATE
     Indication: Prostate cancer
     Dosage: UNIT DOSE : 1000 MG  , FREQUENCY TIME :1 DAY ,   THERAPY  END DATE : NASK
     Dates: start: 20220428
  11. TOUJEO [Suspect]
     Active Substance: INSULIN GLARGINE
     Indication: Type 2 diabetes mellitus
     Dosage: UNIT DOSE : 16 IU  , FREQUENCY TIME : 1 DAY
  12. TRULICITY [Suspect]
     Active Substance: DULAGLUTIDE
     Indication: Type 2 diabetes mellitus
     Dosage: FORM STRENGTH : 1.5 MG , UNIT DOSE : 1 DF , FREQUENCY TIME : 1 WEEKS
  13. HUMALOG [Suspect]
     Active Substance: INSULIN LISPRO
     Indication: Type 2 diabetes mellitus
     Dosage: ACCORDING TO BLOOD SUGAR

REACTIONS (1)
  - Photosensitivity reaction [Unknown]

NARRATIVE: CASE EVENT DATE: 20220711
